FAERS Safety Report 9135295 (Version 1)
Quarter: 2013Q1

REPORT INFORMATION
  Report Type: Spontaneous
  Country: US (occurrence: US)
  Receive Date: 20130304
  Receipt Date: 20130304
  Transmission Date: 20140127
  Serious: No
  Sender: FDA-Public Use
  Company Number: US-ENDO PHARMACEUTICALS INC.-ENDC20110033

PATIENT
  Sex: Male

DRUGS (2)
  1. ENDOCET [Suspect]
     Indication: PAIN
     Dosage: 20/650 MG
     Route: 048
     Dates: start: 201106, end: 20110614
  2. METFORMIN [Concomitant]
     Indication: DIABETES MELLITUS
     Dosage: UNKNOWN
     Route: 065

REACTIONS (1)
  - Laboratory test abnormal [Recovered/Resolved]
